FAERS Safety Report 4474981-4 (Version None)
Quarter: 2004Q3

REPORT INFORMATION
  Report Type: 
  Country: None (occurrence: None)
  Receive Date: 20040923
  Receipt Date: 20040625
  Transmission Date: 20050211
  Serious: No
  Sender: FDA-Public Use
  Company Number: USA040671207

PATIENT
  Age: 66 Year
  Sex: Female

DRUGS (1)
  1. FORTEO [Suspect]
     Indication: OSTEOPOROSIS
     Dates: start: 20030501

REACTIONS (6)
  - CARDIAC STRESS TEST [None]
  - CHEST PAIN [None]
  - COUGH [None]
  - HYPERVENTILATION [None]
  - MUSCLE CRAMP [None]
  - NAUSEA [None]
